FAERS Safety Report 9329364 (Version 1)
Quarter: 2013Q2

REPORT INFORMATION
  Report Type: Spontaneous
  Country: US (occurrence: None)
  Receive Date: 20130531
  Receipt Date: 20130531
  Transmission Date: 20140414
  Serious: Yes (Hospitalization)
  Sender: FDA-Public Use
  Company Number: THQ2013A04025

PATIENT
  Age: 48 Year
  Sex: Male
  Weight: 104.3 kg

DRUGS (6)
  1. PREVACID (LANSOPRAZOLE) [Suspect]
     Indication: ABDOMINAL DISCOMFORT
  2. XANAX [Suspect]
     Indication: ANXIETY
     Route: 048
  3. OXYCODONE HYDROCHLORIDE [Suspect]
     Indication: PAIN
  4. LYRICA [Suspect]
     Indication: PAIN
     Route: 048
     Dates: start: 20130508
  5. CARVEDILOL [Suspect]
     Indication: BLOOD PRESSURE ABNORMAL
     Dosage: 1/2 TABLET TWICE PER DAY.
     Route: 048
  6. ROXICODONE (OXYCODONE HYDROCHLORIDE)(TABLETS) [Concomitant]

REACTIONS (6)
  - Pneumonia [None]
  - Pulmonary thrombosis [None]
  - Rhabdomyolysis [None]
  - Musculoskeletal stiffness [None]
  - Helicobacter infection [None]
  - Drug interaction [None]
